FAERS Safety Report 18758145 (Version 1)
Quarter: 2021Q1

REPORT INFORMATION
  Report Type: Spontaneous
  Country: FR (occurrence: FR)
  Receive Date: 20210119
  Receipt Date: 20210119
  Transmission Date: 20210419
  Serious: Yes (Hospitalization)
  Sender: FDA-Public Use
  Company Number: FR-TEVA-2021-FR-1869466

PATIENT
  Age: 47 Year
  Sex: Male

DRUGS (2)
  1. HYDROXYCHLOROQUINE (SULFATE D^) [Suspect]
     Active Substance: HYDROXYCHLOROQUINE SULFATE
     Indication: ENDOCARDITIS
     Route: 048
     Dates: start: 202002, end: 20201122
  2. DOXYCYCLINE. [Suspect]
     Active Substance: DOXYCYCLINE
     Indication: ENDOCARDITIS
     Route: 048
     Dates: start: 202002

REACTIONS (1)
  - Eczema [Not Recovered/Not Resolved]

NARRATIVE: CASE EVENT DATE: 202005
